FAERS Safety Report 7463217-8 (Version None)
Quarter: 2011Q2

REPORT INFORMATION
  Report Type: 
  Country: None (occurrence: None)
  Receive Date: 20110506
  Receipt Date: 20110427
  Transmission Date: 20111010
  Serious: Yes (Other)
  Sender: FDA-Public Use
  Company Number: FR-PFIZER INC-2011096764

PATIENT
  Age: 90 Year
  Sex: Male

DRUGS (6)
  1. FUROSEMIDE [Suspect]
     Dosage: 80 MG, UNK
     Route: 048
     Dates: end: 20110318
  2. BISOPROLOL [Concomitant]
     Dosage: UNK
  3. PANTOPRAZOLE [Suspect]
     Dosage: 20 MG, 1X/DAY
     Route: 048
     Dates: start: 20110207, end: 20110315
  4. ATHYMIL [Suspect]
     Dosage: 30 MG, UNK
     Route: 048
     Dates: start: 20110207, end: 20110315
  5. AMOXICILLIN [Concomitant]
     Indication: ENDOCARDITIS
     Dosage: UNK G, UNK
  6. DICLOFENAC SODIUM (SOLARAZE) [Suspect]
     Indication: ARTHRALGIA
     Dosage: 50 MG, AS NEEDED
     Route: 048
     Dates: start: 20110221, end: 20110315

REACTIONS (1)
  - AGRANULOCYTOSIS [None]
